FAERS Safety Report 4975679-6 (Version None)
Quarter: 2006Q2

REPORT INFORMATION
  Report Type: 
  Country: None (occurrence: None)
  Receive Date: 20060411
  Receipt Date: 20060331
  Transmission Date: 20061013
  Serious: Yes (Other)
  Sender: FDA-Public Use
  Company Number: SUS1-2006-00357

PATIENT
  Age: 20 Year
  Sex: Female

DRUGS (3)
  1. ADDERALL 10 [Suspect]
     Dosage: 20 MG, 2X/DAY; BID
     Dates: start: 20010101
  2. ALBUTEROL /00139501/ (SALBUTAMOL) [Concomitant]
  3. LEXAPRO [Concomitant]

REACTIONS (6)
  - C-REACTIVE PROTEIN INCREASED [None]
  - FATIGUE [None]
  - PLATELET COUNT INCREASED [None]
  - PYREXIA [None]
  - TONSILLAR HYPERTROPHY [None]
  - WHITE BLOOD CELL COUNT INCREASED [None]
